FAERS Safety Report 4732267-4 (Version None)
Quarter: 2005Q3

REPORT INFORMATION
  Report Type: 
  Country: None (occurrence: None)
  Receive Date: 20050801
  Receipt Date: 20050722
  Transmission Date: 20060218
  Serious: Yes (Disabling)
  Sender: FDA-Public Use
  Company Number: 2005-07-1592

PATIENT
  Age: 27 Year
  Sex: Female

DRUGS (4)
  1. PEG-INTRON [Suspect]
     Indication: HEPATITIS C
     Dosage: SEE IMAGE
     Route: 058
     Dates: start: 20050217, end: 20050301
  2. PEG-INTRON [Suspect]
     Indication: HEPATITIS C
     Dosage: SEE IMAGE
     Route: 058
     Dates: start: 20050217, end: 20050615
  3. PEG-INTRON [Suspect]
     Indication: HEPATITIS C
     Dosage: SEE IMAGE
     Route: 058
     Dates: start: 20050615, end: 20050615
  4. REBETOL [Suspect]
     Indication: HEPATITIS C
     Dosage: 1000 MG QD ORAL
     Route: 048
     Dates: start: 20050217, end: 20050615

REACTIONS (6)
  - HEADACHE [None]
  - HYPOTHYROIDISM [None]
  - LEUKOPENIA [None]
  - NEUTROPENIA [None]
  - SINUSITIS [None]
  - UPPER RESPIRATORY TRACT INFECTION [None]
